FAERS Safety Report 17727428 (Version 1)
Quarter: 2020Q2

REPORT INFORMATION
  Report Type: Spontaneous
  Country: US (occurrence: US)
  Receive Date: 20200430
  Receipt Date: 20200430
  Transmission Date: 20200714
  Serious: Yes (Other)
  Sender: FDA-Public Use
  Company Number: US-BIOVITRUM-2020US1918

PATIENT
  Age: 9 Year
  Sex: Male

DRUGS (1)
  1. ANAKINRA [Suspect]
     Active Substance: ANAKINRA
     Indication: STILL^S DISEASE

REACTIONS (4)
  - Serum ferritin increased [Unknown]
  - Cytopenia [Unknown]
  - Transaminases increased [Unknown]
  - Off label use [Unknown]
